FAERS Safety Report 23440352 (Version 1)
Quarter: 2024Q1

REPORT INFORMATION
  Report Type: Spontaneous
  Country: IT (occurrence: IT)
  Receive Date: 20240124
  Receipt Date: 20240124
  Transmission Date: 20240410
  Serious: Yes (Hospitalization, Other)
  Sender: FDA-Public Use
  Company Number: IT-STRIDES ARCOLAB LIMITED-2024SP000844

PATIENT
  Age: 13 Year
  Sex: Female

DRUGS (12)
  1. CYCLOSPORINE [Suspect]
     Active Substance: CYCLOSPORINE
     Indication: Meconium aspiration syndrome
     Dosage: UNK
     Route: 048
  2. CYCLOSPORINE [Suspect]
     Active Substance: CYCLOSPORINE
     Dosage: 5 MG/KG PER DAY
     Route: 042
  3. CYCLOSPORINE [Suspect]
     Active Substance: CYCLOSPORINE
     Dosage: 5 MG/KG PER DAY
     Route: 042
  4. METHYLPREDNISOLONE [Suspect]
     Active Substance: METHYLPREDNISOLONE
     Indication: Meconium aspiration syndrome
     Dosage: UNK
     Route: 042
  5. METHYLPREDNISOLONE [Suspect]
     Active Substance: METHYLPREDNISOLONE
     Dosage: 30 MG/KG, PER DAY, 7 PULSES (HIGH DSOE)
     Route: 042
  6. METHYLPREDNISOLONE [Suspect]
     Active Substance: METHYLPREDNISOLONE
     Dosage: 30 MG/KG/ DAY, 8 PULSES
     Route: 042
  7. EMAPALUMAB [Suspect]
     Active Substance: EMAPALUMAB
     Indication: Meconium aspiration syndrome
     Dosage: 6 MILLIGRAM/KILOGRAM
     Route: 065
  8. EMAPALUMAB [Suspect]
     Active Substance: EMAPALUMAB
     Dosage: 3 MILLIGRAM/KILOGRAM, EVERY DAYS, 11 INFUSIONS
     Route: 065
  9. EMAPALUMAB [Suspect]
     Active Substance: EMAPALUMAB
     Dosage: UNK
     Route: 065
  10. ANAKINRA [Concomitant]
     Active Substance: ANAKINRA
     Indication: Still^s disease
     Dosage: 2 MG/KG/DAY
     Route: 065
  11. ANAKINRA [Concomitant]
     Active Substance: ANAKINRA
     Dosage: 12 MG/KG/DAY
     Route: 042
  12. ANAKINRA [Concomitant]
     Active Substance: ANAKINRA
     Dosage: UNK (INCREASED DOSE)
     Route: 065

REACTIONS (4)
  - Multiple organ dysfunction syndrome [Recovered/Resolved]
  - Salmonellosis [Recovered/Resolved]
  - Therapy non-responder [Unknown]
  - Off label use [Unknown]
